FAERS Safety Report 5474410-8 (Version None)
Quarter: 2007Q3

REPORT INFORMATION
  Report Type: 
  Country: None (occurrence: None)
  Receive Date: 20070904
  Receipt Date: 20070213
  Transmission Date: 20080115
  Serious: Yes (Hospitalization)
  Sender: FDA-Public Use
  Company Number: 152392USA

PATIENT
  Age: 49 Year
  Sex: Female
  Weight: 78.4723 kg

DRUGS (2)
  1. BACLOFEN [Suspect]
     Indication: MUSCLE SPASTICITY
     Dosage: ORAL
     Route: 048
     Dates: start: 20060301
  2. INTERFERON BETA-1A [Suspect]
     Indication: MULTIPLE SCLEROSIS

REACTIONS (1)
  - GRAND MAL CONVULSION [None]
